FAERS Safety Report 4847147-3 (Version None)
Quarter: 2005Q4

REPORT INFORMATION
  Report Type: 
  Country: None (occurrence: None)
  Receive Date: 20051205
  Receipt Date: 20051128
  Transmission Date: 20060501
  Serious: Yes (Life-Threatening, Hospitalization)
  Sender: FDA-Public Use
  Company Number: 200512402BWH

PATIENT
  Age: 72 Year
  Sex: Female
  Weight: 79.8331 kg

DRUGS (23)
  1. TRASYLOL [Suspect]
     Indication: CORONARY ARTERY SURGERY
     Dosage: SEE IMAGE
     Route: 042
     Dates: start: 20051026
  2. TRASYLOL [Suspect]
     Indication: MITRAL VALVE REPAIR
     Dosage: SEE IMAGE
     Route: 042
     Dates: start: 20051026
  3. COZAAR [Concomitant]
  4. NIACIN [Concomitant]
  5. DILTIAZEM ^STADA^ - SLOW RELEASE [Concomitant]
  6. PRILOSEC [Concomitant]
  7. ALEVE [Concomitant]
  8. TRIAMCINOLONE [Concomitant]
  9. HEPARIN [Concomitant]
  10. PROTAMINE [Concomitant]
  11. LEVOPHED [Concomitant]
  12. DOBUTAMINE [Concomitant]
  13. MILRINONE [Concomitant]
  14. LIDOCAINE [Concomitant]
  15. CALCIUM CHLORIDE [Concomitant]
  16. SODIUM BICARBONATE [Concomitant]
  17. NEOSYNEPHRINE [Concomitant]
  18. MAGNESIUM SULFATE [Concomitant]
  19. VANCOMYCIN [Concomitant]
  20. PLEGISOL [Concomitant]
  21. NORMOSOL R [Concomitant]
  22. FENTANYL [Concomitant]
  23. PROPOFOL [Concomitant]

REACTIONS (4)
  - CEREBROVASCULAR ACCIDENT [None]
  - ELECTROCARDIOGRAM ST SEGMENT ELEVATION [None]
  - GRAFT THROMBOSIS [None]
  - PERIPHERAL VASCULAR DISORDER [None]
